FAERS Safety Report 24416303 (Version 1)
Quarter: 2024Q4

REPORT INFORMATION
  Report Type: Report from Study
  Country: US (occurrence: US)
  Receive Date: 20241009
  Receipt Date: 20241009
  Transmission Date: 20250114
  Serious: Yes (Other)
  Sender: ROCHE
  Company Number: US-ROCHE-10000099668

PATIENT
  Age: 74 Year
  Sex: Female

DRUGS (4)
  1. XOLAIR PFS [Suspect]
     Active Substance: OMALIZUMAB
     Indication: Asthma
     Dosage: INJECT 150MG SUBCUTANEOUSLY EVERY 28 DAY(S)
     Route: 050
  2. XOLAIR PFS [Suspect]
     Active Substance: OMALIZUMAB
     Indication: Rhinitis allergic
  3. XOLAIR PFS [Suspect]
     Active Substance: OMALIZUMAB
     Indication: Seasonal allergy
  4. XOLAIR PFS [Suspect]
     Active Substance: OMALIZUMAB
     Indication: Obstructive sleep apnoea syndrome

REACTIONS (1)
  - Neoplasm malignant [Unknown]
